FAERS Safety Report 5515822-3 (Version None)
Quarter: 2007Q4

REPORT INFORMATION
  Report Type: 
  Country: None (occurrence: None)
  Receive Date: 20071114
  Receipt Date: 20071112
  Transmission Date: 20080405
  Serious: Yes (Death, Hospitalization, Other)
  Sender: FDA-Public Use
  Company Number: ES-BRISTOL-MYERS SQUIBB COMPANY-13798798

PATIENT
  Age: 55 Year
  Sex: Male

DRUGS (19)
  1. CISPLATIN [Suspect]
     Indication: NON-SMALL CELL LUNG CANCER
     Route: 042
     Dates: start: 20070510, end: 20070510
  2. GEMCITABINE [Suspect]
     Indication: NON-SMALL CELL LUNG CANCER
     Route: 042
     Dates: start: 20070510, end: 20070510
  3. SU-011,248 [Suspect]
     Indication: NON-SMALL CELL LUNG CANCER
     Route: 048
     Dates: start: 20070512, end: 20070516
  4. RADIATION THERAPY [Suspect]
     Indication: BONE DISORDER
     Dosage: TOTAL DOSE = 30 GY 10 SESSIONS IN RIGHT ILIAC.
     Dates: start: 20070430, end: 20070514
  5. DURAGESIC-100 [Concomitant]
     Route: 062
     Dates: start: 20070410
  6. METAMIZOLE [Concomitant]
     Route: 048
     Dates: start: 20070421
  7. OMEPRAZOLE [Concomitant]
     Route: 048
     Dates: start: 20070404
  8. FORTECORTIN [Concomitant]
     Route: 048
     Dates: start: 20070404
  9. DUPHALAC [Concomitant]
     Route: 048
     Dates: start: 20070407
  10. DICLOFENAC SODIUM [Concomitant]
     Route: 048
     Dates: start: 20070410
  11. ACTIQ [Concomitant]
     Route: 048
     Dates: start: 20070427
  12. GABAPENTIN [Concomitant]
     Route: 048
     Dates: start: 20070405
  13. SALMETEROL [Concomitant]
     Route: 048
     Dates: start: 20070405
  14. PULMICORT [Concomitant]
     Route: 055
     Dates: start: 20070405
  15. ATROVENT [Concomitant]
     Route: 055
     Dates: start: 20070405
  16. SEVREDOL [Concomitant]
     Dates: start: 20070405
  17. ENOXAPARIN SODIUM [Concomitant]
     Dates: start: 20070404
  18. METOCLOPRAMIDE [Concomitant]
     Dates: start: 20070405
  19. PARACETAMOL [Concomitant]
     Dates: start: 20070422

REACTIONS (6)
  - DIARRHOEA [None]
  - INTESTINAL OBSTRUCTION [None]
  - NEUTROPENIA [None]
  - PNEUMONIA [None]
  - SEPSIS [None]
  - SEPTIC SHOCK [None]
